FAERS Safety Report 5812919-5 (Version None)
Quarter: 2008Q3

REPORT INFORMATION
  Report Type: 
  Country: None (occurrence: None)
  Receive Date: 20080717
  Receipt Date: 20070716
  Transmission Date: 20090109
  Serious: No
  Sender: FDA-Public Use
  Company Number: A0663876A

PATIENT
  Age: 56 Year
  Sex: Female

DRUGS (1)
  1. NICORETTE [Suspect]
     Indication: SMOKING CESSATION THERAPY
     Dosage: 4MG SINGLE DOSE
     Dates: start: 20070711, end: 20070711

REACTIONS (2)
  - NAUSEA [None]
  - VOMITING [None]
